FAERS Safety Report 9697928 (Version 1)
Quarter: 2013Q4

REPORT INFORMATION
  Report Type: Spontaneous
  Country: US (occurrence: US)
  Receive Date: 20131120
  Receipt Date: 20131120
  Transmission Date: 20140711
  Serious: No
  Sender: FDA-Public Use
  Company Number: US-ALEXION-A201303135

PATIENT
  Age: 55 Year
  Sex: Female
  Weight: 63.49 kg

DRUGS (8)
  1. SOLIRIS 300MG [Suspect]
     Indication: PRODUCT USED FOR UNKNOWN INDICATION
     Dosage: 600 MG, QW
     Route: 042
     Dates: start: 20130523
  2. SOLIRIS 300MG [Suspect]
     Dosage: 900 MG, Q2W
     Route: 042
     Dates: end: 20131011
  3. FOLIC ACID [Concomitant]
     Indication: SUPPLEMENTATION THERAPY
  4. FEOSOL [Concomitant]
     Indication: MINERAL SUPPLEMENTATION
  5. BONIVA [Concomitant]
     Indication: OSTEOPOROSIS
  6. PREMPRO [Concomitant]
     Indication: OESTROGEN REPLACEMENT THERAPY
  7. ASA [Concomitant]
     Indication: PRODUCT USED FOR UNKNOWN INDICATION
  8. TYLENOL                            /00020001/ [Concomitant]
     Indication: PRODUCT USED FOR UNKNOWN INDICATION

REACTIONS (5)
  - Headache [Unknown]
  - Nausea [Unknown]
  - Fatigue [Unknown]
  - Dizziness [None]
  - Hot flush [None]
